FAERS Safety Report 5346680-8 (Version None)
Quarter: 2007Q2

REPORT INFORMATION
  Report Type: 
  Country: None (occurrence: None)
  Receive Date: 20070605
  Receipt Date: 20070525
  Transmission Date: 20071010
  Serious: Yes (Other)
  Sender: FDA-Public Use
  Company Number: FR-PFIZER INC-2007042184

PATIENT
  Sex: Female

DRUGS (2)
  1. REVATIO [Suspect]
     Indication: ILL-DEFINED DISORDER
  2. BOSENTAN [Concomitant]

REACTIONS (1)
  - VISUAL ACUITY REDUCED [None]
